FAERS Safety Report 21022408 (Version 1)
Quarter: 2022Q3

REPORT INFORMATION
  Report Type: Spontaneous
  Country: CN (occurrence: CN)
  Receive Date: 20220629
  Receipt Date: 20220629
  Transmission Date: 20221027
  Serious: Yes (Disabling)
  Sender: FDA-Public Use
  Company Number: CN-NOVARTISPH-NVSC2022CN147648

PATIENT
  Age: 78 Year
  Sex: Male
  Weight: 49.3 kg

DRUGS (3)
  1. ENTRESTO [Suspect]
     Active Substance: SACUBITRIL\VALSARTAN
     Indication: Cardiovascular event prophylaxis
     Dosage: 1 DOSAGE FORM, BID (100-150 MG)
     Route: 048
     Dates: start: 20220515
  2. ENTRESTO [Suspect]
     Active Substance: SACUBITRIL\VALSARTAN
     Dosage: 1 DOSAGE FORM, TID (100 MG)
     Route: 048
     Dates: end: 20220519
  3. IOVERSOL [Suspect]
     Active Substance: IOVERSOL
     Indication: Angiocardiogram
     Dosage: 50 ML, QD
     Route: 041
     Dates: start: 20220519, end: 20220519

REACTIONS (1)
  - Acute kidney injury [Recovering/Resolving]

NARRATIVE: CASE EVENT DATE: 20220520
